FAERS Safety Report 8376056-0 (Version None)
Quarter: 2012Q2

REPORT INFORMATION
  Report Type: 
  Country: None (occurrence: None)
  Receive Date: 20120522
  Receipt Date: 20120516
  Transmission Date: 20120825
  Serious: Yes (Hospitalization, Other)
  Sender: FDA-Public Use
  Company Number: PHHY2012BR042853

PATIENT
  Sex: Female

DRUGS (1)
  1. EXFORGE HCT [Suspect]
     Dosage: 160 MG VALS, 10 MG AMLO AND 12.5 MG  HYDRO

REACTIONS (2)
  - EMPHYSEMA [None]
  - RESPIRATORY FAILURE [None]
